FAERS Safety Report 7875303-9 (Version None)
Quarter: 2011Q4

REPORT INFORMATION
  Report Type: 
  Country: None (occurrence: None)
  Receive Date: 20111031
  Receipt Date: 20111017
  Transmission Date: 20120403
  Serious: Yes (Hospitalization, Other)
  Sender: FDA-Public Use
  Company Number: PHHY2010CA01918

PATIENT
  Sex: Female

DRUGS (8)
  1. DESMOPRESSIN [Concomitant]
     Indication: DIABETES INSIPIDUS
     Dosage: 0.3 MG, TID
  2. PREDNISONE [Concomitant]
     Dosage: 5 MG, QD
  3. SANDOSTATIN LAR [Suspect]
     Indication: PITUITARY TUMOUR
     Dosage: 30 MG, QMO
     Route: 030
     Dates: start: 20000501
  4. LAMOTRIGINE [Concomitant]
     Dosage: 25 MG, BID
  5. ESTROGEL [Concomitant]
     Dosage: 2 DF, DAILY
  6. CRESTOR [Concomitant]
     Dosage: 20 MG, DAILY
  7. SYNTHROID [Concomitant]
     Dosage: 0.125 MG, QD
  8. PROMETRIUM [Concomitant]
     Dosage: 100 MG, DAILY

REACTIONS (3)
  - CONVULSION [None]
  - PETIT MAL EPILEPSY [None]
  - GRAND MAL CONVULSION [None]
